FAERS Safety Report 7571048-3 (Version None)
Quarter: 2011Q2

REPORT INFORMATION
  Report Type: 
  Country: None (occurrence: None)
  Receive Date: 20110624
  Receipt Date: 20110616
  Transmission Date: 20111010
  Serious: Yes (Other)
  Sender: FDA-Public Use
  Company Number: US-ROCHE-784347

PATIENT
  Age: 53 Year
  Sex: Female

DRUGS (4)
  1. METFORMIN HCL [Suspect]
     Route: 065
  2. PEGASYS [Suspect]
     Route: 065
     Dates: start: 20110522
  3. LASIX [Suspect]
     Route: 065
  4. RIBAVIRIN [Suspect]
     Route: 065
     Dates: start: 20110522

REACTIONS (1)
  - RENAL FAILURE [None]
